FAERS Safety Report 9578432 (Version 1)
Quarter: 2013Q4

REPORT INFORMATION
  Report Type: Spontaneous
  Country: US (occurrence: US)
  Receive Date: 20131001
  Receipt Date: 20131001
  Transmission Date: 20140711
  Serious: No
  Sender: FDA-Public Use
  Company Number: US-AMGEN-USASP2013013997

PATIENT
  Age: 52 Year
  Sex: Male

DRUGS (1)
  1. PROCRIT [Suspect]
     Indication: HEPATITIS
     Dosage: 40000 U/ML 4 PACK RAR
     Dates: start: 201211

REACTIONS (1)
  - Incorrect dose administered [Unknown]
